FAERS Safety Report 5068327-0 (Version None)
Quarter: 2006Q3

REPORT INFORMATION
  Report Type: 
  Country: None (occurrence: None)
  Receive Date: 20060802
  Receipt Date: 20050803
  Transmission Date: 20061208
  Serious: Yes (Hospitalization)
  Sender: FDA-Public Use
  Company Number: US-BRISTOL-MYERS SQUIBB COMPANY-13062278

PATIENT
  Age: 30 Year
  Sex: Female
  Weight: 47 kg

DRUGS (1)
  1. COUMADIN [Suspect]
     Dosage: 7/31/05, 1 MG; 8/1/05, 3 MG; 8/2/05, 5 MG; 8/3/05, 7.5 MG
     Dates: start: 20050701

REACTIONS (1)
  - INTERNATIONAL NORMALISED RATIO FLUCTUATION [None]
